FAERS Safety Report 5815501-9 (Version None)
Quarter: 2008Q3

REPORT INFORMATION
  Report Type: 
  Country: None (occurrence: None)
  Receive Date: 20080718
  Receipt Date: 20080707
  Transmission Date: 20090109
  Serious: Yes (Other)
  Sender: FDA-Public Use
  Company Number: US-PFIZER INC-2008057220

PATIENT
  Sex: Female
  Weight: 82.6 kg

DRUGS (10)
  1. LYRICA [Suspect]
     Indication: PAIN IN EXTREMITY
  2. PREDNISONE TAB [Suspect]
  3. EVISTA [Suspect]
  4. NITROFURANTOIN [Concomitant]
  5. FUROSEMIDE [Concomitant]
  6. PROGRAF [Concomitant]
  7. FAMOTIDINE [Concomitant]
  8. MYCOPHENOLATE MOFETIL [Concomitant]
  9. LIPITOR [Concomitant]
  10. AZATHIOPRINE [Concomitant]

REACTIONS (3)
  - SWELLING FACE [None]
  - SWOLLEN TONGUE [None]
  - WEIGHT INCREASED [None]
